FAERS Safety Report 19193946 (Version 1)
Quarter: 2021Q2

REPORT INFORMATION
  Report Type: Spontaneous
  Country: US (occurrence: US)
  Receive Date: 20210429
  Receipt Date: 20210429
  Transmission Date: 20210717
  Serious: Yes (Hospitalization)
  Sender: FDA-Public Use
  Company Number: None

PATIENT
  Age: 59 Year
  Sex: Female
  Weight: 105.75 kg

DRUGS (2)
  1. BAMLANIVIMAB. [Suspect]
     Active Substance: BAMLANIVIMAB
     Indication: COVID-19
     Dosage: ?          OTHER FREQUENCY:ONCE;?
     Route: 042
     Dates: start: 20210415, end: 20210415
  2. ETESEVIMAB. [Suspect]
     Active Substance: ETESEVIMAB

REACTIONS (7)
  - Cough [None]
  - Dyspnoea [None]
  - Tachypnoea [None]
  - Chest discomfort [None]
  - Asthenia [None]
  - Respiratory failure [None]
  - Leukocytosis [None]

NARRATIVE: CASE EVENT DATE: 20210426
